FAERS Safety Report 8424048-5 (Version None)
Quarter: 2012Q2

REPORT INFORMATION
  Report Type: 
  Country: None (occurrence: None)
  Receive Date: 20120608
  Receipt Date: 20120522
  Transmission Date: 20120825
  Serious: Yes (Hospitalization, Other)
  Sender: FDA-Public Use
  Company Number: FR-AMGEN-FRASP2012035794

PATIENT
  Age: 67 Year
  Sex: Female

DRUGS (12)
  1. ENBREL [Suspect]
     Indication: RHEUMATOID ARTHRITIS
     Dosage: UNK
     Route: 058
     Dates: start: 20100601, end: 20101001
  2. ORENCIA [Suspect]
     Indication: RHEUMATOID ARTHRITIS
     Dosage: 1 DF, MONTHLY
     Dates: start: 20101115, end: 20120323
  3. PREDNISONE TAB [Concomitant]
     Indication: RHEUMATOID ARTHRITIS
     Dosage: 2.5 MG, DAILY
  4. LEVOTHYROXINE SODIUM [Concomitant]
     Dosage: 125 MUG DAILY
  5. METHOTREXATE SODIUM [Suspect]
     Indication: RHEUMATOID ARTHRITIS
     Dosage: 15 MG, WEEKLY
     Route: 048
     Dates: start: 19980101, end: 20120401
  6. FLECAINIDE ACETATE [Concomitant]
     Dosage: 100 MG DAILY,SUSTAINED RELEASE CAPSULES
  7. PANTOPRAZOLE [Concomitant]
     Dosage: 20 MG DAILY
  8. ZOLPIDEM [Concomitant]
     Dosage: 10 MG DAILY
  9. PREDNISONE [Concomitant]
     Dosage: 5MG, DAILY
  10. PERINDOPRIL ERBUMINE [Concomitant]
     Dosage: 2 MG DAILY
  11. INDAPAMIDE [Concomitant]
     Dosage: 1 DF DAILY
  12. REMICADE [Suspect]
     Indication: RHEUMATOID ARTHRITIS
     Dosage: UNK UNK, Q7WK
     Route: 042
     Dates: start: 20020101, end: 20100601

REACTIONS (5)
  - CEREBROVASCULAR ACCIDENT [None]
  - LUNG DISORDER [None]
  - ACUTE MYELOID LEUKAEMIA [None]
  - ARTHROPATHY [None]
  - RIGHT VENTRICULAR FAILURE [None]
